FAERS Safety Report 4981790-6 (Version None)
Quarter: 2006Q2

REPORT INFORMATION
  Report Type: 
  Country: None (occurrence: None)
  Receive Date: 20060425
  Receipt Date: 20060421
  Transmission Date: 20061013
  Serious: Yes (Other)
  Sender: FDA-Public Use
  Company Number: US-GLAXOSMITHKLINE-A0602808A

PATIENT
  Age: 62 Year
  Sex: Female

DRUGS (24)
  1. ADVAIR DISKUS 100/50 [Suspect]
     Indication: ASTHMA
     Dosage: 1PUFF TWICE PER DAY
     Route: 055
  2. LAMICTAL [Suspect]
     Route: 048
     Dates: start: 20000101
  3. QVAR 40 [Concomitant]
  4. ALBUTEROL [Concomitant]
  5. ALBUTEROL [Concomitant]
  6. NASAREL [Concomitant]
  7. LISINOPRIL [Concomitant]
  8. CLONAZEPAM [Concomitant]
  9. DIAZEPAM [Concomitant]
  10. PROVIGIL [Concomitant]
  11. ENDOCET [Concomitant]
  12. EXCEDRIN (MIGRAINE) [Concomitant]
  13. MULTI-VITAMIN [Concomitant]
  14. VITAMIN B COMPLEX 100 [Concomitant]
  15. B12 [Concomitant]
  16. ZINC [Concomitant]
  17. CO Q 10 [Concomitant]
  18. MAGNESIUM SUPPLEMENT [Concomitant]
  19. POTASSIUM [Concomitant]
  20. FISH OIL [Concomitant]
  21. MUCINEX [Concomitant]
  22. ASCORBIC ACID [Concomitant]
  23. UNKNOWN MEDICATION [Concomitant]
  24. PERCOCET [Concomitant]

REACTIONS (12)
  - ASTHMA [None]
  - BLISTER [None]
  - CHOKING [None]
  - COUGH [None]
  - DYSPNOEA [None]
  - HYPOTHYROIDISM [None]
  - PHARMACEUTICAL PRODUCT COMPLAINT [None]
  - PRURITUS [None]
  - SKIN DISCOLOURATION [None]
  - SKIN EXFOLIATION [None]
  - STEVENS-JOHNSON SYNDROME [None]
  - THERMAL BURN [None]
